FAERS Safety Report 19372812 (Version 2)
Quarter: 2023Q2

REPORT INFORMATION
  Report Type: Spontaneous
  Country: US (occurrence: US)
  Receive Date: 20210604
  Receipt Date: 20230619
  Transmission Date: 20230721
  Serious: Yes (Hospitalization, Other)
  Sender: FDA-Public Use
  Company Number: US-SA-SAC20210602000092

PATIENT
  Age: 59 Year
  Sex: Female

DRUGS (5)
  1. AUBAGIO [Suspect]
     Active Substance: TERIFLUNOMIDE
     Indication: Multiple sclerosis
     Dosage: 14 MG, QD
     Route: 048
     Dates: start: 2011
  2. VITAMIN D3 [Concomitant]
     Active Substance: CHOLECALCIFEROL
  3. DULOXETINE HYDROCHLORIDE [Concomitant]
     Active Substance: DULOXETINE HYDROCHLORIDE
  4. BACLOFEN [Concomitant]
     Active Substance: BACLOFEN
  5. TIZANIDINE HYDROCHLORIDE [Concomitant]
     Active Substance: TIZANIDINE HYDROCHLORIDE

REACTIONS (5)
  - Cerebral haemorrhage [Recovering/Resolving]
  - Road traffic accident [Recovering/Resolving]
  - Craniocerebral injury [Recovering/Resolving]
  - Amnesia [Recovering/Resolving]
  - Aphonia [Recovering/Resolving]

NARRATIVE: CASE EVENT DATE: 20210101
